FAERS Safety Report 5249989-1 (Version None)
Quarter: 2007Q1

REPORT INFORMATION
  Report Type: 
  Country: None (occurrence: None)
  Receive Date: 20070228
  Receipt Date: 20060208
  Transmission Date: 20070707
  Serious: No
  Sender: FDA-Public Use
  Company Number: US-GLAXOSMITHKLINE-A0589663A

PATIENT
  Age: 67 Year
  Sex: Female
  Weight: 59.1 kg

DRUGS (6)
  1. LAMICTAL [Suspect]
     Indication: BIPOLAR DISORDER
     Dosage: 200MG PER DAY
     Route: 048
     Dates: start: 20020101, end: 20060112
  2. INDERAL [Concomitant]
     Route: 065
  3. LIPITOR [Concomitant]
  4. ACTONEL [Concomitant]
  5. ANAFRANIL [Concomitant]
     Route: 065
  6. RISPERDAL [Concomitant]
     Route: 065

REACTIONS (3)
  - HYPERPARATHYROIDISM [None]
  - HYPERSENSITIVITY [None]
  - RASH [None]
